FAERS Safety Report 12470836 (Version 1)
Quarter: 2016Q2

REPORT INFORMATION
  Report Type: Spontaneous
  Country: US (occurrence: None)
  Receive Date: 20160615
  Receipt Date: 20160615
  Transmission Date: 20160815
  Serious: Yes (Life-Threatening, Hospitalization, Disabling, Other)
  Sender: FDA-Public Use
  Company Number: None

PATIENT
  Age: 71 Year
  Sex: Male
  Weight: 74.84 kg

DRUGS (4)
  1. ATORVASTATIN [Concomitant]
     Active Substance: ATORVASTATIN
  2. BP MEDS [Concomitant]
  3. LOVENOX [Suspect]
     Active Substance: ENOXAPARIN SODIUM
     Indication: THROMBOSIS PROPHYLAXIS
     Dosage: GIVEN INTO/UNDER THE SKIN
     Dates: start: 20150126, end: 20151216
  4. 81MG ASPIRIN [Concomitant]

REACTIONS (7)
  - Haemangioma [None]
  - Abdominal pain [None]
  - Cerebrovascular accident [None]
  - Blood pressure decreased [None]
  - Amnesia [None]
  - Hypoaesthesia [None]
  - Retroperitoneal haemorrhage [None]

NARRATIVE: CASE EVENT DATE: 20150126
